FAERS Safety Report 9267705 (Version 1)
Quarter: 2013Q2

REPORT INFORMATION
  Report Type: Spontaneous
  Country: US (occurrence: US)
  Receive Date: 20130502
  Receipt Date: 20130502
  Transmission Date: 20140414
  Serious: No
  Sender: FDA-Public Use
  Company Number: US-ALEXION-A201200848

PATIENT
  Age: 67 Year
  Sex: Female
  Weight: 59.4 kg

DRUGS (5)
  1. SOLIRIS 300MG [Suspect]
     Indication: PAROXYSMAL NOCTURNAL HAEMOGLOBINURIA
     Dosage: 600 MG, QW
     Route: 042
     Dates: start: 20120203, end: 201202
  2. SOLIRIS 300MG [Suspect]
     Dosage: 900 MG, UNK
     Dates: start: 20120302
  3. DIGOXIN [Concomitant]
     Indication: ARRHYTHMIA
     Dosage: 125 MCG QD
     Route: 048
  4. IRON [Concomitant]
     Indication: ANAEMIA
     Dosage: 18MG IRON/600 MG MULTI QD
     Route: 048
  5. PREDNISONE [Concomitant]
     Indication: PAROXYSMAL NOCTURNAL HAEMOGLOBINURIA
     Dosage: 5 MG, QD
     Route: 048

REACTIONS (3)
  - Ocular hyperaemia [Not Recovered/Not Resolved]
  - Eye swelling [Not Recovered/Not Resolved]
  - Vision blurred [Not Recovered/Not Resolved]
